FAERS Safety Report 5674882-X (Version None)
Quarter: 2008Q1

REPORT INFORMATION
  Report Type: 
  Country: None (occurrence: None)
  Receive Date: 20080320
  Receipt Date: 20080317
  Transmission Date: 20080703
  Serious: Yes (Death, Other)
  Sender: FDA-Public Use
  Company Number: GB-ASTRAZENECA-2008GB00524

PATIENT
  Age: 80 Year
  Sex: Female

DRUGS (9)
  1. OMEPRAZOLE [Suspect]
     Indication: GASTROINTESTINAL DISORDER
     Route: 048
  2. SIMVASTATIN [Suspect]
     Route: 048
  3. ADALAT [Concomitant]
  4. ASPIRIN [Concomitant]
  5. DIPYRIDAMOLE [Concomitant]
  6. GAVISCON [Concomitant]
  7. METOPROLOL TARTRATE [Concomitant]
  8. PARACETAMOL [Concomitant]
  9. PERINDOPRIL [Concomitant]

REACTIONS (2)
  - DEATH [None]
  - DYSPHAGIA [None]
